FAERS Safety Report 8361114-7 (Version None)
Quarter: 2012Q2

REPORT INFORMATION
  Report Type: 
  Country: None (occurrence: None)
  Receive Date: 20120515
  Receipt Date: 20120508
  Transmission Date: 20120825
  Serious: Yes (Hospitalization, Other)
  Sender: FDA-Public Use
  Company Number: US-BRISTOL-MYERS SQUIBB COMPANY-16578742

PATIENT
  Age: 71 Year
  Sex: Female

DRUGS (2)
  1. ORENCIA [Suspect]
     Dosage: INTERRUPTED AND RESTARTED LAST INFUSION: 24APR2012
  2. PREDNISONE TAB [Concomitant]

REACTIONS (4)
  - BREAST PROSTHESIS REMOVAL [None]
  - HIP ARTHROPLASTY [None]
  - DRUG INEFFECTIVE [None]
  - STAPHYLOCOCCAL INFECTION [None]
